FAERS Safety Report 9628524 (Version 1)
Quarter: 2013Q4

REPORT INFORMATION
  Report Type: Spontaneous
  Country: None (occurrence: US)
  Receive Date: 20131017
  Receipt Date: 20131017
  Transmission Date: 20140711
  Serious: Yes (Hospitalization)
  Sender: FDA-Public Use
  Company Number: US-ACCORD-019796

PATIENT
  Age: 24 Year
  Sex: Female

DRUGS (4)
  1. AMLODIPINE [Suspect]
     Dosage: DOSAGE: 400 TO 600 MG
  2. SIMVASTATIN [Suspect]
  3. TRAZODONE [Suspect]
  4. SERTRALINE [Concomitant]
     Indication: DEPRESSION

REACTIONS (7)
  - Intentional overdose [Unknown]
  - Hypotension [Recovered/Resolved]
  - Metabolic acidosis [Recovering/Resolving]
  - Lung infiltration [Recovering/Resolving]
  - Rhabdomyolysis [Recovered/Resolved]
  - Renal failure [Recovering/Resolving]
  - Renal tubular necrosis [Recovering/Resolving]
